FAERS Safety Report 22202199 (Version 2)
Quarter: 2023Q2

REPORT INFORMATION
  Report Type: Report from Study
  Country: US (occurrence: US)
  Receive Date: 20230412
  Receipt Date: 20230524
  Transmission Date: 20230722
  Serious: Yes (Hospitalization)
  Sender: FDA-Public Use
  Company Number: US-EXELIXIS-CABO-23062615

PATIENT
  Age: 68 Year
  Sex: Female
  Weight: 62 kg

DRUGS (16)
  1. CABOMETYX [Suspect]
     Active Substance: CABOZANTINIB S-MALATE
     Indication: Renal cell carcinoma
     Dosage: 60 MG, QD
     Route: 048
     Dates: start: 20221129
  2. CABOMETYX [Suspect]
     Active Substance: CABOZANTINIB S-MALATE
     Dosage: 40 MG, QD
     Route: 048
     Dates: end: 20230301
  3. CABOMETYX [Suspect]
     Active Substance: CABOZANTINIB S-MALATE
     Dosage: 40 MG, QD
     Route: 048
     Dates: start: 20230306
  4. BRILINTA [Concomitant]
     Active Substance: TICAGRELOR
  5. CARVEDILOL [Concomitant]
     Active Substance: CARVEDILOL
  6. POTASSIUM [Concomitant]
     Active Substance: POTASSIUM
  7. LANTUS [Concomitant]
     Active Substance: INSULIN GLARGINE
  8. LEVOTHYROXINE [Concomitant]
     Active Substance: LEVOTHYROXINE
  9. LOSARTAN [Concomitant]
     Active Substance: LOSARTAN
  10. ROSUVASTATIN [Concomitant]
     Active Substance: ROSUVASTATIN
  11. ANASTROZOLE [Concomitant]
     Active Substance: ANASTROZOLE
  12. FAMOTIDINE [Concomitant]
     Active Substance: FAMOTIDINE
  13. NOVOLIN NOS [Concomitant]
     Active Substance: INSULIN HUMAN
  14. HYDRALAZINE [Concomitant]
     Active Substance: HYDRALAZINE HYDROCHLORIDE
  15. VELTASSA [Concomitant]
     Active Substance: PATIROMER
  16. PROCHLORPERAZINE [Concomitant]
     Active Substance: PROCHLORPERAZINE

REACTIONS (2)
  - Abscess [Unknown]
  - Alopecia [Unknown]

NARRATIVE: CASE EVENT DATE: 20230301
